FAERS Safety Report 12399575 (Version 1)
Quarter: 2016Q2

REPORT INFORMATION
  Report Type: Not Available
  Country: None (occurrence: US)
  Receive Date: 20160524
  Receipt Date: 20160524
  Transmission Date: 20160815
  Serious: No
  Sender: FDA-Public Use
  Company Number: US-AKORN-24328

PATIENT

DRUGS (1)
  1. CLOBETASOL PROPIONATE CREAM, USP [Suspect]
     Active Substance: CLOBETASOL PROPIONATE

REACTIONS (4)
  - Arthralgia [None]
  - Pain in extremity [None]
  - Back pain [None]
  - Application site hypoaesthesia [None]
